FAERS Safety Report 14533915 (Version 1)
Quarter: 2018Q1

REPORT INFORMATION
  Report Type: Spontaneous
  Country: FR (occurrence: US)
  Receive Date: 20180215
  Receipt Date: 20180215
  Transmission Date: 20180509
  Serious: Yes (Other)
  Sender: FDA-Public Use
  Company Number: FR-OTSUKA-2017_006037

PATIENT
  Sex: Male

DRUGS (1)
  1. BUSULFEX [Suspect]
     Active Substance: BUSULFAN
     Indication: BONE MARROW FAILURE
     Dosage: UNK
     Route: 042
     Dates: start: 2014

REACTIONS (2)
  - Staphylococcal infection [Recovered/Resolved]
  - Neutropenia [Recovered/Resolved]
